FAERS Safety Report 9168126 (Version 2)
Quarter: 2013Q2

REPORT INFORMATION
  Report Type: Report from Study
  Country: US (occurrence: US)
  Receive Date: 20130318
  Receipt Date: 20130404
  Transmission Date: 20140414
  Serious: Yes (Other)
  Sender: FDA-Public Use
  Company Number: US-VERTEX PHARMACEUTICALS INC.-2013-003657

PATIENT
  Sex: Female
  Weight: 59 kg

DRUGS (9)
  1. VX-950 (TELAPREVIR) [Suspect]
     Indication: HEPATITIS C
     Dosage: 750 MG, TID
     Route: 048
  2. RIBAPAK [Suspect]
     Indication: HEPATITIS C
     Dosage: 400 MG, QD
  3. RIBAPAK [Suspect]
     Dosage: 800 MG, QD
  4. PEGASYS [Suspect]
     Indication: HEPATITIS C
     Route: 058
  5. BONIVA [Concomitant]
     Dosage: 150 MG
  6. AMBIEN [Concomitant]
     Dosage: 10 MG
  7. CALCIUM [Concomitant]
     Dosage: 500 TAB
  8. TAMOXIFEN [Concomitant]
     Dosage: 10 MG
  9. PROCRIT [Concomitant]

REACTIONS (4)
  - Anaemia [Unknown]
  - Anxiety [Unknown]
  - Nervousness [Unknown]
  - Fatigue [Unknown]
